FAERS Safety Report 4644224-7 (Version None)
Quarter: 2005Q2

REPORT INFORMATION
  Report Type: 
  Country: None (occurrence: None)
  Receive Date: 20050331
  Receipt Date: 20050106
  Transmission Date: 20051028
  Serious: No
  Sender: FDA-Public Use
  Company Number: 05P-163-0285490-00

PATIENT
  Age: 75 Year
  Sex: Male
  Weight: 79.8331 kg

DRUGS (5)
  1. HUMIRA [Suspect]
     Indication: RHEUMATOID ARTHRITIS
     Dosage: 40 MG, 1 IN 2 WK, SUBCUTANEOUS
     Route: 058
     Dates: start: 20040601
  2. ENAPRIL [Concomitant]
  3. PREDNISONE [Concomitant]
  4. GLIMEPIRIDE [Concomitant]
  5. FAMOTIDINE [Concomitant]

REACTIONS (1)
  - MUSCULOSKELETAL STIFFNESS [None]
